FAERS Safety Report 15533838 (Version 13)
Quarter: 2019Q2

REPORT INFORMATION
  Report Type: Spontaneous
  Country: BR (occurrence: BR)
  Receive Date: 20181019
  Receipt Date: 20190408
  Transmission Date: 20190711
  Serious: Yes (Other)
  Sender: FDA-Public Use
  Company Number: BR-PFIZER INC-2018420902

PATIENT
  Age: 70 Year
  Sex: Female

DRUGS (10)
  1. LORAX//LORAZEPAM [Suspect]
     Active Substance: LORAZEPAM
     Dosage: 2 MG, 1X/DAY, (1 TABLET OF 2 MG AT NIGHT)
  2. LORAX//LORAZEPAM [Suspect]
     Active Substance: LORAZEPAM
     Dosage: 2 MG, 1X/DAY, (2 TABLETS OF 1 MG)
  3. ALENDRONATE SODIUM. [Concomitant]
     Active Substance: ALENDRONATE SODIUM
     Dosage: UNK
  4. MILK OF MAGNESIA [Concomitant]
     Active Substance: MAGNESIUM HYDROXIDE
     Dosage: UNK
  5. EQUILID [Concomitant]
     Active Substance: SULPIRIDE
     Indication: ANXIETY
     Dosage: UNK
  6. LORAX//LORAZEPAM [Suspect]
     Active Substance: LORAZEPAM
     Dosage: 1 MG, UNK
  7. OMEPRAZOLE. [Concomitant]
     Active Substance: OMEPRAZOLE
     Dosage: UNK
  8. LORAX//LORAZEPAM [Suspect]
     Active Substance: LORAZEPAM
     Indication: INSOMNIA
     Dosage: 0.5 DF, UNK (HALF TABLET OF 2 MG)
  9. SUPOSITORIOS DE GLICERINA [Concomitant]
     Indication: GASTROINTESTINAL OBSTRUCTION
     Dosage: UNK
  10. LORAX//LORAZEPAM [Suspect]
     Active Substance: LORAZEPAM
     Indication: ANXIETY
     Dosage: 0.5 MG, UNK, (ONE QUARTER OF THE MEDICATION)
     Dates: start: 1988

REACTIONS (20)
  - Cataract [Recovered/Resolved]
  - Intentional product misuse [Unknown]
  - Circumstance or information capable of leading to medication error [Unknown]
  - Blood pressure increased [Not Recovered/Not Resolved]
  - Somatic symptom disorder [Unknown]
  - Sinusitis [Unknown]
  - Therapeutic response unexpected [Unknown]
  - Fear [Recovered/Resolved]
  - Tension [Not Recovered/Not Resolved]
  - Anxiety [Not Recovered/Not Resolved]
  - Musculoskeletal pain [Not Recovered/Not Resolved]
  - Muscle tightness [Not Recovered/Not Resolved]
  - Osteoarthritis [Unknown]
  - Confusional state [Unknown]
  - Headache [Unknown]
  - Drug ineffective [Unknown]
  - Feeling of despair [Recovered/Resolved]
  - Depression [Not Recovered/Not Resolved]
  - Wrong technique in product usage process [Unknown]
  - Arthralgia [Not Recovered/Not Resolved]

NARRATIVE: CASE EVENT DATE: 2005
